FAERS Safety Report 7380661-8 (Version None)
Quarter: 2011Q1

REPORT INFORMATION
  Report Type: 
  Country: None (occurrence: None)
  Receive Date: 20110321
  Receipt Date: 20110307
  Transmission Date: 20110831
  Serious: Yes (Other)
  Sender: FDA-Public Use
  Company Number: 2011MA002171

PATIENT
  Sex: Female

DRUGS (1)
  1. METOCLOPRAMIDE TABLETS USP, 10 MG (PUREPAC) [Suspect]
     Dosage: PO
     Route: 048
     Dates: start: 20040801, end: 20100601

REACTIONS (2)
  - TARDIVE DYSKINESIA [None]
  - EMOTIONAL DISTRESS [None]
